FAERS Safety Report 7155856-9 (Version None)
Quarter: 2010Q4

REPORT INFORMATION
  Report Type: 
  Country: None (occurrence: None)
  Receive Date: 20101214
  Receipt Date: 20101208
  Transmission Date: 20110411
  Serious: Yes (Death)
  Sender: FDA-Public Use
  Company Number: FR-KINGPHARMUSA00001-K201001480

PATIENT
  Age: 62 Year
  Sex: Female

DRUGS (2)
  1. ALTACE [Suspect]
     Dosage: 5 MG, UNK
     Route: 048
  2. FELODIPINE [Suspect]
     Dosage: 5 MG, UNK
     Route: 048

REACTIONS (1)
  - RESPIRATORY ARREST [None]
